FAERS Safety Report 21244562 (Version 1)
Quarter: 2022Q3

REPORT INFORMATION
  Report Type: Spontaneous
  Country: US (occurrence: None)
  Receive Date: 20220822
  Receipt Date: 20220822
  Transmission Date: 20221026
  Serious: Yes (Hospitalization)
  Sender: FDA-Public Use
  Company Number: None

PATIENT
  Age: 84 Year
  Sex: Female

DRUGS (1)
  1. CAPECITABINE [Suspect]
     Active Substance: CAPECITABINE
     Dosage: FREQUENCY : TWICE A DAY;?
     Route: 048

REACTIONS (7)
  - Fatigue [None]
  - Neuropathy peripheral [None]
  - Amnesia [None]
  - Therapy interrupted [None]
  - Seizure [None]
  - Off label use [None]
  - Pleural effusion [None]

NARRATIVE: CASE EVENT DATE: 20220805
